FAERS Safety Report 10718655 (Version 2)
Quarter: 2015Q1

REPORT INFORMATION
  Report Type: Spontaneous
  Country: US (occurrence: US)
  Receive Date: 20150119
  Receipt Date: 20150119
  Transmission Date: 20150721
  Serious: No
  Sender: FDA-Public Use
  Company Number: US-UNITED THERAPEUTICS-UNT-2014-004993

PATIENT
  Sex: Female
  Weight: 72.11 kg

DRUGS (3)
  1. ADEMPAS [Suspect]
     Active Substance: RIOCIGUAT
     Indication: PRODUCT USED FOR UNKNOWN INDICATION
  2. REMODULIN [Suspect]
     Active Substance: TREPROSTINIL
     Indication: PULMONARY HYPERTENSION
     Dosage: 0.10975 ?G/KG/MIN, CONTINUING
     Route: 058
     Dates: start: 20120814
  3. LETAIRIS [Concomitant]
     Active Substance: AMBRISENTAN
     Indication: PRODUCT USED FOR UNKNOWN INDICATION

REACTIONS (10)
  - Infusion site haemorrhage [Unknown]
  - Haemorrhagic diathesis [Unknown]
  - Infusion site pain [Unknown]
  - Oedema peripheral [Not Recovered/Not Resolved]
  - Fluid retention [Unknown]
  - Infusion site erythema [Unknown]
  - Infusion site reaction [Unknown]
  - Infusion site oedema [Unknown]
  - Infusion site inflammation [Unknown]
  - Weight increased [Unknown]
